FAERS Safety Report 7426166-7 (Version None)
Quarter: 2011Q2

REPORT INFORMATION
  Report Type: 
  Country: None (occurrence: None)
  Receive Date: 20110420
  Receipt Date: 20110414
  Transmission Date: 20111010
  Serious: Yes (Death)
  Sender: FDA-Public Use
  Company Number: PHHY2011NZ28511

PATIENT
  Sex: Male

DRUGS (4)
  1. CLOZARIL [Suspect]
     Indication: SCHIZOPHRENIA
     Dosage: 350 MG NOCTE
     Route: 048
     Dates: start: 19940225
  2. FLUPENTIXOL [Concomitant]
     Dosage: 40 MG TWO WEEKLY
     Route: 030
  3. DISIPAL [Concomitant]
     Dosage: 100 MEQ/KG, TID
  4. CITALOPRAM [Concomitant]
     Dosage: 30 MG MANE
     Route: 048

REACTIONS (1)
  - DEATH [None]
